FAERS Safety Report 16400379 (Version 1)
Quarter: 2019Q2

REPORT INFORMATION
  Report Type: Spontaneous
  Country: US (occurrence: US)
  Receive Date: 20190606
  Receipt Date: 20190606
  Transmission Date: 20190711
  Serious: No
  Sender: FDA-Public Use
  Company Number: US-BAUSCH-BL-2019-015856

PATIENT
  Age: 65 Year
  Sex: Female

DRUGS (2)
  1. LUMIFY [Suspect]
     Active Substance: BRIMONIDINE TARTRATE
     Dosage: RESUMED
     Route: 047
     Dates: start: 201905, end: 201905
  2. LUMIFY [Suspect]
     Active Substance: BRIMONIDINE TARTRATE
     Indication: OCULAR HYPERAEMIA
     Dosage: APPROXIMATELY ONE WEEK AGO; ONE DROP IN BOTH EYES
     Route: 047
     Dates: start: 201905, end: 201905

REACTIONS (5)
  - Eye discharge [Recovering/Resolving]
  - Vision blurred [Recovering/Resolving]
  - Eye infection [Recovering/Resolving]
  - Eye pruritus [Recovering/Resolving]
  - Ocular hyperaemia [Recovering/Resolving]

NARRATIVE: CASE EVENT DATE: 201905
